FAERS Safety Report 12271177 (Version 2)
Quarter: 2016Q2

REPORT INFORMATION
  Report Type: Spontaneous
  Country: US (occurrence: US)
  Receive Date: 20160415
  Receipt Date: 20160429
  Transmission Date: 20160815
  Serious: Yes (Hospitalization, Other)
  Sender: FDA-Public Use
  Company Number: US-ASTRAZENECA-2016SE39025

PATIENT
  Age: 857 Month
  Sex: Female
  Weight: 64.4 kg

DRUGS (10)
  1. FOLIC ACID. [Concomitant]
     Active Substance: FOLIC ACID
     Indication: ASTHENIA
     Dates: start: 20160328
  2. VITAMIN D [Concomitant]
     Active Substance: CHOLECALCIFEROL
     Dosage: 50.000 UNITS ONCE A WEEK
     Dates: start: 201603
  3. BABY ASPIRIN [Concomitant]
     Active Substance: ASPIRIN
  4. STOOL SOFTNER [Concomitant]
     Active Substance: DOCUSATE SODIUM
  5. TUDORZA PRESSAIR [Suspect]
     Active Substance: ACLIDINIUM BROMIDE
     Indication: CHRONIC OBSTRUCTIVE PULMONARY DISEASE
     Dosage: 400 MCG, ONE PUFF TWICE A DAY
     Route: 055
     Dates: start: 2015, end: 201604
  6. ADVAIR HFA [Concomitant]
     Active Substance: FLUTICASONE PROPIONATE\SALMETEROL XINAFOATE
  7. TUDORZA PRESSAIR [Suspect]
     Active Substance: ACLIDINIUM BROMIDE
     Indication: CHRONIC OBSTRUCTIVE PULMONARY DISEASE
     Dosage: 400 MCG, ONE PUFF TWICE A DAY
     Route: 055
     Dates: start: 201604
  8. CARBAMAZEPINE. [Concomitant]
     Active Substance: CARBAMAZEPINE
     Indication: TRIGEMINAL NEURALGIA
     Dosage: 100MG 2 IN THE MORNING AND 2 WITH FOOD
     Dates: start: 201602
  9. ALEVE OTC [Concomitant]
     Indication: ARTHROPATHY
  10. VENTOLIN [Concomitant]
     Active Substance: ALBUTEROL SULFATE
     Dosage: AS REQUIRED

REACTIONS (9)
  - Heart rate increased [Recovered/Resolved]
  - Vitamin D decreased [Unknown]
  - Hypotension [Recovered/Resolved]
  - Trigeminal neuralgia [Not Recovered/Not Resolved]
  - Arthritis [Unknown]
  - Lung neoplasm malignant [Unknown]
  - Chest pain [Recovered/Resolved]
  - Nasopharyngitis [Recovered/Resolved]
  - Drug dose omission [Unknown]

NARRATIVE: CASE EVENT DATE: 201511
